FAERS Safety Report 16808408 (Version 2)
Quarter: 2019Q3

REPORT INFORMATION
  Report Type: Spontaneous
  Country: JP (occurrence: JP)
  Receive Date: 20190916
  Receipt Date: 20190919
  Transmission Date: 20191005
  Serious: No
  Sender: FDA-Public Use
  Company Number: JP-BEH-2019101491

PATIENT
  Age: 60 Year
  Sex: Male
  Weight: 90 kg

DRUGS (13)
  1. SEISHOKU [Concomitant]
     Active Substance: SODIUM CHLORIDE
     Indication: THROMBOSIS PROPHYLAXIS
  2. HIZENTRA [Suspect]
     Active Substance: HUMAN IMMUNOGLOBULIN G
     Indication: IMMUNOGLOBULIN THERAPY
     Dosage: 8 G (TWO SITES 20 ML EACH), TOT
     Route: 058
     Dates: start: 20190409, end: 20190409
  3. CLOPIDOGREL SULFATE [Concomitant]
     Active Substance: CLOPIDOGREL BISULFATE
     Indication: PROPHYLAXIS
     Dosage: 1 TABLET AFTER BREAKFAST
     Route: 048
  4. HIZENTRA [Suspect]
     Active Substance: HUMAN IMMUNOGLOBULIN G
     Indication: CHRONIC INFLAMMATORY DEMYELINATING POLYRADICULONEUROPATHY
     Dosage: 8 GRAM, TOT
     Route: 058
     Dates: start: 20190410
  5. NOVORAPID [Concomitant]
     Active Substance: INSULIN ASPART
     Dosage: 1.0 UNIT,1 HOUR CONTINUOUS INFUSION, QD
     Route: 058
  6. ADETPHOS [Concomitant]
     Active Substance: ADENOSINE TRIPHOSPHATE
     Dosage: 1 GRANULE, AFTER EVERY MEAL
     Route: 048
  7. NEUROTROPIN [RABBIT VACCINIA EXTRACT] [Concomitant]
     Active Substance: ORYCTOLAGUS CUNICULUS SKIN
     Dosage: 4 TABLETS (2 TABLETS AFTER BREAKFAST AND DINNER)
     Route: 048
  8. HIZENTRA [Suspect]
     Active Substance: HUMAN IMMUNOGLOBULIN G
     Dosage: 8 GRAM, QW
     Route: 058
  9. KETAS [Concomitant]
     Active Substance: IBUDILAST
     Dosage: 6 CAPSULES PER DAY (3 CAPSULES AFTER EVERY MEAL)
     Route: 048
  10. SEISHOKU [Concomitant]
     Active Substance: SODIUM CHLORIDE
     Indication: THROMBOSIS PROPHYLAXIS
  11. NOVORAPID [Concomitant]
     Active Substance: INSULIN ASPART
     Indication: DIABETES MELLITUS
     Dosage: 3.5-4 UNITS, BEFORE EVERY MEAL
     Route: 058
  12. PARIET [Concomitant]
     Active Substance: RABEPRAZOLE SODIUM
     Dosage: 1 TABLET, AFTER BREAKFAST
     Route: 048
  13. LOTRIGA [Concomitant]
     Active Substance: OMEGA-3-ACID ETHYL ESTERS
     Dosage: 2 BAGS (1 BAG AFTER BREAKFAST AND DINNER) PER DAY
     Route: 048

REACTIONS (3)
  - Joint swelling [Recovering/Resolving]
  - Injection site pruritus [Recovered/Resolved]
  - Injection site swelling [Recovering/Resolving]

NARRATIVE: CASE EVENT DATE: 20190409
